FAERS Safety Report 4562403-4 (Version None)
Quarter: 2005Q1

REPORT INFORMATION
  Report Type: 
  Country: None (occurrence: None)
  Receive Date: 20050127
  Receipt Date: 20040816
  Transmission Date: 20050727
  Serious: Yes (Other)
  Sender: FDA-Public Use
  Company Number: US-BRISTOL-MYERS SQUIBB COMPANY-12672622

PATIENT
  Age: 65 Year
  Sex: Female
  Weight: 61 kg

DRUGS (6)
  1. KENALOG [Suspect]
     Indication: ARTHROPATHY
     Dates: start: 20040210, end: 20040210
  2. LIDOCAINE [Suspect]
     Indication: ARTHROPATHY
     Dates: start: 20040210, end: 20040210
  3. BEXTRA [Concomitant]
  4. ASPIRIN [Concomitant]
  5. FOLIC ACID [Concomitant]
  6. VITAMIN B COMPLEX CAP [Concomitant]

REACTIONS (1)
  - ANAPHYLACTOID REACTION [None]
